FAERS Safety Report 10214629 (Version 3)
Quarter: 2014Q2

REPORT INFORMATION
  Report Type: Spontaneous
  Country: EG (occurrence: EG)
  Receive Date: 20140603
  Receipt Date: 20140616
  Transmission Date: 20141212
  Serious: Yes (Other)
  Sender: FDA-Public Use
  Company Number: EG-PFIZER INC-2014151701

PATIENT
  Age: 20 Year
  Sex: Male

DRUGS (2)
  1. CONTROLOC [Suspect]
     Dosage: 40 MG, UNK
  2. NEXIUM [Concomitant]
     Dosage: 40 MG

REACTIONS (2)
  - Haematemesis [Recovering/Resolving]
  - Gastrointestinal disorder [Recovering/Resolving]
